FAERS Safety Report 4526263-X (Version None)
Quarter: 2004Q4

REPORT INFORMATION
  Report Type: 
  Country: None (occurrence: None)
  Receive Date: 20041210
  Receipt Date: 20041201
  Transmission Date: 20050328
  Serious: Yes (Hospitalization)
  Sender: FDA-Public Use
  Company Number: 2004AP05832

PATIENT
  Age: 89 Year
  Sex: Male
  Weight: 53 kg

DRUGS (8)
  1. SEROQUEL [Suspect]
     Indication: DELIRIUM
     Dosage: 25 MG DAILY; PO
     Route: 048
     Dates: start: 20040901, end: 20040927
  2. RHYTHMY [Concomitant]
  3. AZELASTINE HCL [Concomitant]
  4. TALION [Concomitant]
  5. ZYLORIC ^GLAXO WELLCOME^ [Concomitant]
  6. MICARDIS [Concomitant]
  7. LAC B [Concomitant]
  8. PERDIPINE [Concomitant]

REACTIONS (6)
  - ARRHYTHMIA [None]
  - BLOOD POTASSIUM INCREASED [None]
  - CONDITION AGGRAVATED [None]
  - DIZZINESS [None]
  - RENAL FAILURE CHRONIC [None]
  - URINARY RETENTION [None]
